FAERS Safety Report 11233784 (Version 2)
Quarter: 2015Q3

REPORT INFORMATION
  Report Type: Spontaneous
  Country: US (occurrence: US)
  Receive Date: 20150702
  Receipt Date: 20150702
  Transmission Date: 20151125
  Serious: Yes (Other)
  Sender: FDA-Public Use
  Company Number: PHHY2015US075336

PATIENT

DRUGS (4)
  1. ZOMETA [Suspect]
     Active Substance: ZOLEDRONIC ACID
     Indication: NEUROBLASTOMA
     Dosage: 4 MG/M2 PER DOSE
     Route: 065
  2. TOPOTECAN [Suspect]
     Active Substance: TOPOTECAN\TOPOTECAN HYDROCHLORIDE
     Indication: NEUROBLASTOMA
     Dosage: 1 MG/M2 PER DOSE
     Route: 065
  3. BUPROPION. [Suspect]
     Active Substance: BUPROPION
     Indication: NEUROBLASTOMA
     Dosage: 1.5 MG/KG, QD
     Route: 065
  4. VINBLASTINE [Suspect]
     Active Substance: VINBLASTINE
     Indication: NEUROBLASTOMA
     Dosage: 3 MG/M2 PER DOSE
     Route: 065

REACTIONS (7)
  - Oesophageal pain [Unknown]
  - Lymphopenia [Unknown]
  - Leukopenia [Unknown]
  - Blood bilirubin increased [Unknown]
  - Thrombocytopenia [Unknown]
  - Off label use [Unknown]
  - Neutropenia [Unknown]
